FAERS Safety Report 22291524 (Version 1)
Quarter: 2023Q2

REPORT INFORMATION
  Report Type: Spontaneous
  Country: US (occurrence: US)
  Receive Date: 20230506
  Receipt Date: 20230506
  Transmission Date: 20230721
  Serious: No
  Sender: FDA-Public Use
  Company Number: US-BAXTER-2023BAX019118

PATIENT
  Age: 76 Year
  Sex: Female
  Weight: 48.98 kg

DRUGS (1)
  1. TISSEEL [Suspect]
     Active Substance: FIBRINOGEN HUMAN\THROMBIN HUMAN
     Dosage: AT AN UNSPECIFIED DOSE AND FREQUENCY, STRENGTH - 2 ML, PRN OPTHALMIC
     Route: 065
     Dates: start: 20230410

REACTIONS (2)
  - Drug ineffective [Unknown]
  - Liquid product physical issue [Unknown]

NARRATIVE: CASE EVENT DATE: 20230410
